FAERS Safety Report 4751712-1 (Version None)
Quarter: 2005Q3

REPORT INFORMATION
  Report Type: 
  Country: None (occurrence: None)
  Receive Date: 20050824
  Receipt Date: 20050408
  Transmission Date: 20060218
  Serious: Yes (Hospitalization)
  Sender: FDA-Public Use
  Company Number: 2005AP02239

PATIENT
  Age: 669 Month
  Sex: Male
  Weight: 62.3 kg

DRUGS (6)
  1. IRESSA [Suspect]
     Indication: LUNG ADENOCARCINOMA
     Route: 048
     Dates: start: 20041117, end: 20050329
  2. VOLTAREN [Suspect]
     Indication: SHOULDER PAIN
     Route: 048
     Dates: start: 20050316, end: 20050329
  3. SIGMART [Concomitant]
     Indication: ANGINA PECTORIS
     Route: 048
  4. CYTOTEC [Concomitant]
     Indication: GASTRIC ULCER
     Route: 048
     Dates: start: 20041222, end: 20050329
  5. CONIEL [Concomitant]
     Indication: ANGINA PECTORIS
     Route: 048
  6. BEZATOL SR [Concomitant]
     Indication: HYPERURICAEMIA
     Route: 048

REACTIONS (4)
  - DIVERTICULITIS INTESTINAL HAEMORRHAGIC [None]
  - EPISTAXIS [None]
  - PETECHIAE [None]
  - SHOULDER PAIN [None]
